FAERS Safety Report 12136777 (Version 1)
Quarter: 2016Q1

REPORT INFORMATION
  Report Type: Spontaneous
  Country: US (occurrence: None)
  Receive Date: 20160301
  Receipt Date: 20160301
  Transmission Date: 20160526
  Serious: No
  Sender: FDA-Public Use
  Company Number: None

PATIENT
  Age: 69 Year
  Sex: Male
  Weight: 82.8 kg

DRUGS (1)
  1. OLODATEROL [Suspect]
     Active Substance: OLODATEROL
     Dosage: 2 PUFFS, EVERY DAY, INHALE
     Route: 055
     Dates: start: 20150421, end: 20160114

REACTIONS (1)
  - Headache [None]

NARRATIVE: CASE EVENT DATE: 20160114
